FAERS Safety Report 8542456-9 (Version None)
Quarter: 2012Q3

REPORT INFORMATION
  Report Type: 
  Country: None (occurrence: None)
  Receive Date: 20120726
  Receipt Date: 20110720
  Transmission Date: 20120928
  Serious: Yes (Other)
  Sender: FDA-Public Use
  Company Number: US-ASTRAZENECA-2008UW12258

PATIENT
  Age: 45 Year
  Sex: Male
  Weight: 89.8 kg

DRUGS (9)
  1. CALCIUM [Concomitant]
     Dates: start: 20031124
  2. AVINZA [Concomitant]
     Dates: start: 20031124
  3. PREDNISONE [Concomitant]
     Dates: start: 20031124
  4. SEROQUEL [Suspect]
     Indication: DEPRESSION
     Route: 048
     Dates: start: 20031120, end: 20050427
  5. TRAMADOL HCL [Concomitant]
     Dates: start: 20031120
  6. PRAVACHOL [Concomitant]
     Dates: start: 20031215
  7. ZETIA [Concomitant]
     Dates: start: 20031215
  8. PROTONIX [Concomitant]
     Dates: start: 20031202
  9. ALTACE [Concomitant]
     Dates: start: 20031220

REACTIONS (4)
  - ARTHRITIS [None]
  - CEREBROVASCULAR ACCIDENT [None]
  - TYPE 2 DIABETES MELLITUS [None]
  - HYPERTENSION [None]
